FAERS Safety Report 20116039 (Version 3)
Quarter: 2022Q2

REPORT INFORMATION
  Report Type: Spontaneous
  Country: US (occurrence: US)
  Receive Date: 20211126
  Receipt Date: 20220627
  Transmission Date: 20220721
  Serious: No
  Sender: FDA-Public Use
  Company Number: US-AMGEN-USASP2021185995

PATIENT
  Age: 70 Year
  Sex: Female

DRUGS (2)
  1. OTEZLA [Suspect]
     Active Substance: APREMILAST
     Indication: Psoriasis
     Dosage: 1 DOSAGE FORM, BID
     Route: 048
  2. OTEZLA [Suspect]
     Active Substance: APREMILAST
     Dosage: 30 MILLIGRAM, BID
     Route: 048

REACTIONS (2)
  - Product supply issue [Unknown]
  - Psoriasis [Recovered/Resolved]

NARRATIVE: CASE EVENT DATE: 20210101
